FAERS Safety Report 4439624-4 (Version None)
Quarter: 2004Q3

REPORT INFORMATION
  Report Type: 
  Country: None (occurrence: None)
  Receive Date: 20040831
  Receipt Date: 20040831
  Transmission Date: 20050211
  Serious: Yes (Life-Threatening, Hospitalization, Disabling)
  Sender: FDA-Public Use
  Company Number: None

PATIENT
  Age: 70 Year
  Sex: Male
  Weight: 72.5755 kg

DRUGS (1)
  1. LUPRON DEPOT [Suspect]
     Indication: PROSTATE CANCER METASTATIC
     Dosage: 12/23/2003 ONCE INTRAMUSCULAR
     Route: 030
     Dates: start: 20031223, end: 20040413

REACTIONS (6)
  - ANOREXIA [None]
  - DYSPHAGIA [None]
  - MUSCULAR WEAKNESS [None]
  - PARALYSIS [None]
  - RESPIRATORY FAILURE [None]
  - VISUAL ACUITY REDUCED [None]
